FAERS Safety Report 5453002-0 (Version None)
Quarter: 2007Q3

REPORT INFORMATION
  Report Type: 
  Country: None (occurrence: None)
  Receive Date: 20070914
  Receipt Date: 20070914
  Transmission Date: 20080115
  Serious: Yes (Hospitalization)
  Sender: FDA-Public Use
  Company Number: IT-ROXANE LABORATORIES, INC-2007-DE-05497GD

PATIENT
  Age: 42 Year
  Sex: Male

DRUGS (2)
  1. ASPIRIN [Suspect]
  2. METHADONE HCL [Suspect]

REACTIONS (1)
  - ACUTE MYOCARDIAL INFARCTION [None]
